FAERS Safety Report 8888104 (Version 2)
Quarter: 2013Q1

REPORT INFORMATION
  Report Type: Spontaneous
  Country: KR (occurrence: KR)
  Receive Date: 20121106
  Receipt Date: 20121120
  Transmission Date: 20140127
  Serious: Yes (Other)
  Sender: FDA-Public Use
  Company Number: KR-ACCORD-015188

PATIENT
  Age: 60 Year
  Sex: Male

DRUGS (2)
  1. FINASTERIDE(FINASTERIDE) [Suspect]
     Indication: BENIGN PROSTATIC HYPERPLASIA
     Dates: start: 201006
  2. ALFUZOSIN(ALFUZOSIN) [Suspect]
     Indication: BENIGN PROSTATIC HYPERPLASIA
     Dates: start: 201006

REACTIONS (4)
  - Optic ischaemic neuropathy [Recovered/Resolved]
  - Colour vision tests abnormal [Recovered/Resolved]
  - Dizziness [Unknown]
  - Hypotension [Unknown]
